FAERS Safety Report 6637081-0 (Version None)
Quarter: 2010Q1

REPORT INFORMATION
  Report Type: 
  Country: None (occurrence: None)
  Receive Date: 20100311
  Receipt Date: 20100224
  Transmission Date: 20100710
  Serious: Yes (Hospitalization)
  Sender: FDA-Public Use
  Company Number: DSA_42677_2010

PATIENT
  Age: 61 Year
  Sex: Male

DRUGS (5)
  1. ENALAPRIL MALEATE [Suspect]
     Indication: CARDIAC FAILURE
     Dosage: DF ORAL, 20 MG QD ORAL, 10 MG QD ORAL
     Route: 048
     Dates: start: 20091119, end: 20091101
  2. ENALAPRIL MALEATE [Suspect]
     Indication: CARDIAC FAILURE
     Dosage: DF ORAL, 20 MG QD ORAL, 10 MG QD ORAL
     Route: 048
     Dates: start: 20091101, end: 20091129
  3. ENALAPRIL MALEATE [Suspect]
     Indication: CARDIAC FAILURE
     Dosage: DF ORAL, 20 MG QD ORAL, 10 MG QD ORAL
     Route: 048
     Dates: start: 20091130
  4. MEROPENEM [Concomitant]
  5. FOSFOMYCIN [Concomitant]

REACTIONS (2)
  - CARDIOPULMONARY FAILURE [None]
  - RENAL FAILURE [None]
